FAERS Safety Report 12439182 (Version 1)
Quarter: 2016Q2

REPORT INFORMATION
  Report Type: Spontaneous
  Country: FR (occurrence: FR)
  Receive Date: 20160606
  Receipt Date: 20160606
  Transmission Date: 20160815
  Serious: Yes (Hospitalization, Other)
  Sender: FDA-Public Use
  Company Number: FR-ELI_LILLY_AND_COMPANY-FR201606000210

PATIENT
  Age: 95 Year
  Sex: Female

DRUGS (6)
  1. IMOVANE [Concomitant]
     Active Substance: ZOPICLONE
     Indication: PRODUCT USED FOR UNKNOWN INDICATION
     Dosage: UNK
     Route: 065
  2. SECTRAL [Suspect]
     Active Substance: ACEBUTOLOL HYDROCHLORIDE
     Indication: HYPERTENSION
     Dosage: 200 MG, QD
     Route: 048
     Dates: end: 20140910
  3. TIAPRIDAL [Suspect]
     Active Substance: TIAPRIDE HYDROCHLORIDE
     Indication: PRODUCT USED FOR UNKNOWN INDICATION
     Dosage: 3 DF, QD
     Route: 048
     Dates: end: 20140910
  4. EBIXA [Concomitant]
     Active Substance: MEMANTINE HYDROCHLORIDE
     Indication: PRODUCT USED FOR UNKNOWN INDICATION
     Dosage: UNK
     Route: 065
  5. ATARAX [Suspect]
     Active Substance: HYDROXYZINE\HYDROXYZINE HYDROCHLORIDE
     Indication: PRODUCT USED FOR UNKNOWN INDICATION
     Dosage: HALF OF DOSAGE FORM (12.5MG), QD
     Route: 048
     Dates: end: 20140910
  6. PROZAC [Suspect]
     Active Substance: FLUOXETINE HYDROCHLORIDE
     Indication: PRODUCT USED FOR UNKNOWN INDICATION
     Dosage: HALF OF DOSAGE FORM (10 MG), QD
     Route: 048
     Dates: end: 20140910

REACTIONS (5)
  - Blood pressure decreased [Unknown]
  - Bradycardia [Recovered/Resolved]
  - Sinus node dysfunction [Recovered/Resolved]
  - Blood potassium increased [Recovered/Resolved]
  - Malaise [Recovered/Resolved]

NARRATIVE: CASE EVENT DATE: 20140910
